FAERS Safety Report 6302947-8 (Version None)
Quarter: 2009Q3

REPORT INFORMATION
  Report Type: 
  Country: None (occurrence: None)
  Receive Date: 20090810
  Receipt Date: 20090805
  Transmission Date: 20100115
  Serious: Yes (Hospitalization)
  Sender: FDA-Public Use
  Company Number: B0564535A

PATIENT
  Sex: Female

DRUGS (1)
  1. LAMICTAL [Suspect]
     Indication: BIPOLAR I DISORDER
     Route: 048
     Dates: start: 20080910, end: 20090416

REACTIONS (2)
  - MANIA [None]
  - SICK SINUS SYNDROME [None]
